FAERS Safety Report 6869183-8 (Version None)
Quarter: 2010Q3

REPORT INFORMATION
  Report Type: 
  Country: None (occurrence: None)
  Receive Date: 20100722
  Receipt Date: 20100713
  Transmission Date: 20110219
  Serious: Yes (Other)
  Sender: FDA-Public Use
  Company Number: US-AMGEN-QUU422348

PATIENT
  Sex: Female

DRUGS (5)
  1. ENBREL [Suspect]
     Indication: PRODUCT USED FOR UNKNOWN INDICATION
     Route: 058
     Dates: start: 20100610, end: 20100708
  2. ARTIFICIAL TEARS [Concomitant]
  3. REGLAN [Concomitant]
  4. CYCLOBENZAPRINE [Concomitant]
  5. MERCAPTOPURINE [Concomitant]

REACTIONS (2)
  - HEPATIC ENZYME INCREASED [None]
  - OCULAR ICTERUS [None]
